FAERS Safety Report 16297338 (Version 1)
Quarter: 2019Q2

REPORT INFORMATION
  Report Type: Report from Study
  Country: US (occurrence: US)
  Receive Date: 20190510
  Receipt Date: 20190510
  Transmission Date: 20190711
  Serious: Yes (Other)
  Sender: FDA-Public Use
  Company Number: US-TAIHO ONCOLOGY  INC-EU-2019-01312

PATIENT
  Age: 67 Year
  Sex: Female
  Weight: 76.27 kg

DRUGS (8)
  1. LONSURF [Suspect]
     Active Substance: TIPIRACIL HYDROCHLORIDE\TRIFLURIDINE
     Route: 048
     Dates: start: 20190325, end: 2019
  2. XANAX [Concomitant]
     Active Substance: ALPRAZOLAM
     Dosage: NI
  3. LISINOPRIL. [Concomitant]
     Active Substance: LISINOPRIL
     Dosage: NI
  4. COREG [Concomitant]
     Active Substance: CARVEDILOL
     Dosage: NI
  5. SIMVASTATIN. [Concomitant]
     Active Substance: SIMVASTATIN
     Dosage: NI
  6. LONSURF [Suspect]
     Active Substance: TIPIRACIL HYDROCHLORIDE\TRIFLURIDINE
     Indication: COLON CANCER
     Route: 048
     Dates: start: 20181212
  7. ZOFRAN [Concomitant]
     Active Substance: ONDANSETRON HYDROCHLORIDE
     Dosage: NI
  8. LASIX [Concomitant]
     Active Substance: FUROSEMIDE
     Dosage: NI

REACTIONS (2)
  - Haemorrhage [Recovered/Resolved]
  - Neutropenia [Unknown]

NARRATIVE: CASE EVENT DATE: 20190318
